FAERS Safety Report 8420884-X (Version None)
Quarter: 2012Q2

REPORT INFORMATION
  Report Type: 
  Country: None (occurrence: None)
  Receive Date: 20120608
  Receipt Date: 20120601
  Transmission Date: 20120825
  Serious: Yes (Other)
  Sender: FDA-Public Use
  Company Number: BR-PFIZER INC-2012133482

PATIENT
  Age: 79 Year
  Sex: Female

DRUGS (2)
  1. PRADAXA [Concomitant]
     Indication: ANTICOAGULANT THERAPY
     Dosage: 150MG (STRENGTH), 1X/DAY
     Dates: start: 20120524
  2. LIPITOR [Suspect]
     Indication: ARTERIOSCLEROSIS
     Dosage: 10 MG, (ONE TABLET), 1X/DAY
     Route: 048
     Dates: start: 20090101

REACTIONS (2)
  - ARTHROPATHY [None]
  - HYPERTENSION [None]
